FAERS Safety Report 12564083 (Version 1)
Quarter: 2016Q3

REPORT INFORMATION
  Report Type: Spontaneous
  Country: US (occurrence: US)
  Receive Date: 20160718
  Receipt Date: 20160718
  Transmission Date: 20161109
  Serious: No
  Sender: FDA-Public Use
  Company Number: US-GLENMARK PHARMACEUTICALS INC, USA.-2016GMK022395

PATIENT
  Sex: Female

DRUGS (2)
  1. METFORMIN HYDROCHLORIDE. [Suspect]
     Active Substance: METFORMIN HYDROCHLORIDE
     Indication: INSULIN RESISTANCE
     Dosage: UNK
  2. RHIGF1 [Suspect]
     Active Substance: MECASERMIN
     Indication: INSULIN RESISTANCE
     Dosage: UNK, BID

REACTIONS (2)
  - Off label use [Unknown]
  - Therapeutic response unexpected [Unknown]
